FAERS Safety Report 17439745 (Version 1)
Quarter: 2020Q1

REPORT INFORMATION
  Report Type: Spontaneous
  Country: US (occurrence: US)
  Receive Date: 20200219
  Receipt Date: 20200219
  Transmission Date: 20200409
  Serious: Yes (Other)
  Sender: FDA-Public Use
  Company Number: None

PATIENT
  Age: 4 Year
  Sex: Male
  Weight: 65.7 kg

DRUGS (1)
  1. LEVALBUTEROL. [Suspect]
     Active Substance: LEVALBUTEROL
     Indication: ASTHMA
     Route: 055
     Dates: start: 20100102, end: 20100102

REACTIONS (4)
  - Product substitution issue [None]
  - Extrapyramidal disorder [None]
  - Panic reaction [None]
  - Dyspnoea [None]

NARRATIVE: CASE EVENT DATE: 20100102
